FAERS Safety Report 5248731-8 (Version None)
Quarter: 2007Q1

REPORT INFORMATION
  Report Type: 
  Country: None (occurrence: None)
  Receive Date: 20070223
  Receipt Date: 20070210
  Transmission Date: 20070707
  Serious: Yes (Death)
  Sender: FDA-Public Use
  Company Number: 151632ISR

PATIENT
  Age: 64 Year
  Sex: Female

DRUGS (1)
  1. SERTRALINE [Suspect]

REACTIONS (3)
  - COMPLETED SUICIDE [None]
  - DROWNING [None]
  - INTENTIONAL OVERDOSE [None]
